FAERS Safety Report 6591174-5 (Version None)
Quarter: 2010Q1

REPORT INFORMATION
  Report Type: 
  Country: None (occurrence: None)
  Receive Date: 20100219
  Receipt Date: 20100217
  Transmission Date: 20100710
  Serious: Yes (Life-Threatening, Hospitalization)
  Sender: FDA-Public Use
  Company Number: NL-ROCHE-667863

PATIENT

DRUGS (8)
  1. CAPECITABINE [Suspect]
     Indication: GASTRIC CANCER
     Dosage: LAST DOSE PRIOR TO EVENT: 20 OCTOBER 2009.
     Route: 065
     Dates: start: 20090908
  2. EPIRUBICIN [Suspect]
     Indication: GASTRIC CANCER
     Dosage: LAST DOSE PRIOR TO EVENT: 20 OCTOBER 2009.
     Route: 065
     Dates: start: 20090908
  3. CISPLATIN [Suspect]
     Indication: GASTRIC CANCER
     Dosage: LAST DOSE PRIOR TO EVENT: 20 OCTOBER 2009.
     Route: 065
     Dates: start: 20090908
  4. LEXAPRO [Concomitant]
     Dosage: DRUG: LEXAPRO 20 UG.
     Route: 048
     Dates: start: 20090729
  5. LABETALOL HCL [Concomitant]
     Dosage: DRUG: LABETALOL 50 MG.
     Route: 048
     Dates: start: 20080101
  6. FRAXODI [Concomitant]
  7. NOVORAPID [Concomitant]
     Route: 058
     Dates: start: 19970101
  8. LANTUS [Concomitant]
     Route: 058
     Dates: start: 19970101

REACTIONS (3)
  - FEEDING TUBE COMPLICATION [None]
  - HYPERGLYCAEMIA [None]
  - VENOUS THROMBOSIS [None]
